APPROVED DRUG PRODUCT: ELIXOMIN
Active Ingredient: THEOPHYLLINE
Strength: 80MG/15ML
Dosage Form/Route: ELIXIR;ORAL
Application: A088303 | Product #001
Applicant: HR CENCI LABORATORIES INC
Approved: Jan 25, 1984 | RLD: No | RS: No | Type: DISCN